FAERS Safety Report 25919166 (Version 1)
Quarter: 2025Q4

REPORT INFORMATION
  Report Type: Spontaneous
  Country: US (occurrence: US)
  Receive Date: 20251014
  Receipt Date: 20251014
  Transmission Date: 20260118
  Serious: No
  Sender: NOVARTIS
  Company Number: US-002147023-NVSC2025US154848

PATIENT

DRUGS (1)
  1. VIJOICE [Suspect]
     Active Substance: ALPELISIB
     Indication: Product used for unknown indication
     Dosage: UNK (PIK3CARELATED OVERGROWTH SPECTRUM (PROS))
     Route: 065

REACTIONS (2)
  - Skin disorder [Unknown]
  - Abdominal discomfort [Unknown]
